FAERS Safety Report 13998393 (Version 1)
Quarter: 2017Q3

REPORT INFORMATION
  Report Type: Spontaneous
  Country: BR (occurrence: BR)
  Receive Date: 20170922
  Receipt Date: 20170922
  Transmission Date: 20171128
  Serious: Yes (Other)
  Sender: FDA-Public Use
  Company Number: BR-ABBVIE-17P-020-2110414-00

PATIENT
  Age: 2 Year
  Sex: Male
  Weight: 14.5 kg

DRUGS (5)
  1. SALINE [Concomitant]
     Active Substance: SODIUM CHLORIDE
     Indication: ASTHMA
     Dosage: LIQUID
     Route: 055
     Dates: start: 20170915, end: 20170916
  2. SALINE [Concomitant]
     Active Substance: SODIUM CHLORIDE
     Dosage: LIQUID
     Route: 055
     Dates: start: 20170917
  3. KLARICID [Suspect]
     Active Substance: CLARITHROMYCIN
     Indication: PNEUMONIA
     Dosage: 50 MG/ML
     Route: 048
     Dates: start: 20170915
  4. AEROLIN [Concomitant]
     Active Substance: ALBUTEROL
     Indication: ASTHMATIC CRISIS
     Dosage: SPRAY MIST
     Route: 055
     Dates: start: 20170915
  5. PREDNISOLONE. [Concomitant]
     Active Substance: PREDNISOLONE
     Indication: ASTHMA
     Route: 048
     Dates: start: 20170912

REACTIONS (6)
  - Crying [Not Recovered/Not Resolved]
  - Haematemesis [Recovered/Resolved]
  - Abnormal behaviour [Not Recovered/Not Resolved]
  - Refusal of treatment by patient [Recovering/Resolving]
  - Liquid product physical issue [Unknown]
  - Vomiting [Not Recovered/Not Resolved]

NARRATIVE: CASE EVENT DATE: 20170916
